FAERS Safety Report 9227860 (Version 1)
Quarter: 2013Q2

REPORT INFORMATION
  Report Type: Spontaneous
  Country: US (occurrence: None)
  Receive Date: 20130411
  Receipt Date: 20130411
  Transmission Date: 20140414
  Serious: Yes (Other)
  Sender: FDA-Public Use
  Company Number: None

PATIENT
  Age: 64 Year
  Sex: Male
  Weight: 92.99 kg

DRUGS (1)
  1. SYMBICORT [Suspect]
     Indication: ASTHMA
     Dosage: 1 PUFF TWICE PER DAY PO
     Route: 048
     Dates: start: 20090201, end: 20130310

REACTIONS (5)
  - Muscle spasms [None]
  - Muscle spasms [None]
  - Lung disorder [None]
  - Muscle spasms [None]
  - Activities of daily living impaired [None]
